FAERS Safety Report 16381701 (Version 1)
Quarter: 2019Q2

REPORT INFORMATION
  Report Type: Spontaneous
  Country: FR (occurrence: FR)
  Receive Date: 20190603
  Receipt Date: 20190603
  Transmission Date: 20190711
  Serious: Yes (Hospitalization)
  Sender: FDA-Public Use
  Company Number: FR-SA-2019SA141528

PATIENT
  Age: 78 Year
  Sex: Female
  Weight: 83 kg

DRUGS (17)
  1. COAPROVEL [Suspect]
     Active Substance: HYDROCHLOROTHIAZIDE\IRBESARTAN
     Indication: HYPERTENSION
     Dosage: 1 DF, QD
     Route: 048
     Dates: start: 20180213, end: 20180217
  2. INEGY [Concomitant]
     Active Substance: EZETIMIBE\SIMVASTATIN
  3. LASILIX [Suspect]
     Active Substance: FUROSEMIDE
     Indication: HYPERTENSION
     Dosage: 165 MG, QD
     Route: 048
     Dates: start: 20180213
  4. AVAMYS [Suspect]
     Active Substance: FLUTICASONE FUROATE
     Indication: RHINITIS ALLERGIC
     Dosage: UNK UNK, UNK
     Route: 055
  5. KARDEGIC [Concomitant]
     Active Substance: ASPIRIN DL-LYSINE
  6. LASILIX [Suspect]
     Active Substance: FUROSEMIDE
     Dosage: UNK UNK, UNK
     Route: 048
  7. LEVEMIR [Concomitant]
     Active Substance: INSULIN DETEMIR
  8. LYRICA [Concomitant]
     Active Substance: PREGABALIN
  9. TRAMADOL. [Concomitant]
     Active Substance: TRAMADOL
  10. TIORFAN [Concomitant]
     Active Substance: RACECADOTRIL
  11. TEMERIT [Concomitant]
     Active Substance: NEBIVOLOL
  12. PARACETAMOL [Concomitant]
     Active Substance: ACETAMINOPHEN
  13. SITAGLIPTIN [Suspect]
     Active Substance: SITAGLIPTIN
     Indication: TYPE 2 DIABETES MELLITUS
     Dosage: UNK UNK, UNK
     Route: 048
  14. EUPANTOL [Concomitant]
     Active Substance: PANTOPRAZOLE SODIUM
  15. REPAGLINIDE. [Suspect]
     Active Substance: REPAGLINIDE
     Indication: TYPE 2 DIABETES MELLITUS
     Dosage: UNK UNK, UNK
     Route: 048
  16. METFORMIN HYDROCHLORIDE. [Suspect]
     Active Substance: METFORMIN HYDROCHLORIDE
     Indication: TYPE 2 DIABETES MELLITUS
     Dosage: UNK UNK, UNK
     Route: 048
  17. HUMALOG [Concomitant]
     Active Substance: INSULIN LISPRO

REACTIONS (2)
  - Acute kidney injury [Recovered/Resolved]
  - Anuria [Recovered/Resolved]

NARRATIVE: CASE EVENT DATE: 20180214
